FAERS Safety Report 13106557 (Version 5)
Quarter: 2018Q1

REPORT INFORMATION
  Report Type: Report from Study
  Country: US (occurrence: US)
  Receive Date: 20170111
  Receipt Date: 20180222
  Transmission Date: 20180508
  Serious: Yes (Hospitalization)
  Sender: FDA-Public Use
  Company Number: US-ACTELION-A-US2017-148033

PATIENT
  Age: 64 Year
  Sex: Female
  Weight: 93.88 kg

DRUGS (3)
  1. ADEMPAS [Suspect]
     Active Substance: RIOCIGUAT
     Indication: PRODUCT USED FOR UNKNOWN INDICATION
     Dosage: UNK
     Route: 065
  2. COUMADIN [Concomitant]
     Active Substance: WARFARIN SODIUM
  3. TRACLEER [Suspect]
     Active Substance: BOSENTAN
     Indication: PULMONARY ARTERIAL HYPERTENSION
     Dosage: 125 MG, BID
     Route: 048
     Dates: start: 20050627

REACTIONS (18)
  - Peritoneal haemorrhage [Unknown]
  - Cough [Unknown]
  - Haematoma [Unknown]
  - Diarrhoea [Unknown]
  - Clostridium difficile infection [Unknown]
  - Oxygen saturation decreased [Unknown]
  - Fatigue [Unknown]
  - Choking [Unknown]
  - Visual brightness [Unknown]
  - Heart rate increased [Unknown]
  - Oedema [Unknown]
  - Dyspnoea [Unknown]
  - Hypotension [Unknown]
  - Loss of consciousness [Unknown]
  - Headache [Unknown]
  - Dizziness [Unknown]
  - Vomiting [Unknown]
  - Abdominal pain [Unknown]
